FAERS Safety Report 25539726 (Version 2)
Quarter: 2025Q3

REPORT INFORMATION
  Report Type: Spontaneous
  Country: EU (occurrence: EU)
  Receive Date: 20250710
  Receipt Date: 20250718
  Transmission Date: 20251020
  Serious: Yes (Hospitalization, Other)
  Sender: PFIZER
  Company Number: EU-STADA-01411973

PATIENT
  Age: 68 Year
  Sex: Female

DRUGS (27)
  1. SUNITINIB MALATE [Suspect]
     Active Substance: SUNITINIB MALATE
     Indication: Gastrointestinal stromal tumour
     Route: 065
     Dates: start: 20231108, end: 20240515
  2. SUNITINIB MALATE [Suspect]
     Active Substance: SUNITINIB MALATE
     Dates: start: 20240611
  3. IMATINIB [Suspect]
     Active Substance: IMATINIB
     Indication: Gastrointestinal stromal tumour
     Dosage: 400 MG, 1X/DAY
     Route: 065
     Dates: start: 20230315, end: 20230424
  4. IMATINIB [Suspect]
     Active Substance: IMATINIB
     Dosage: 100 MG, 1X/DAY
     Route: 048
     Dates: start: 20230925, end: 20230927
  5. IMATINIB [Suspect]
     Active Substance: IMATINIB
     Dosage: 1 MG, 1X/DAY
     Route: 048
     Dates: start: 20240422
  6. IMATINIB [Suspect]
     Active Substance: IMATINIB
     Dosage: 3 MG, 1X/DAY
     Route: 048
     Dates: start: 20240429
  7. IMATINIB [Suspect]
     Active Substance: IMATINIB
     Dosage: 10 MG, 1X/DAY
     Route: 048
     Dates: start: 20240506
  8. IMATINIB [Suspect]
     Active Substance: IMATINIB
     Dosage: 30 MG, 1X/DAY
     Route: 048
     Dates: start: 20240515
  9. IMATINIB [Suspect]
     Active Substance: IMATINIB
     Dosage: 50 MG, 1X/DAY
     Route: 048
     Dates: start: 20240523
  10. IMATINIB [Suspect]
     Active Substance: IMATINIB
     Dosage: 100 MG, 1X/DAY
     Route: 048
     Dates: start: 20240528
  11. IMATINIB [Suspect]
     Active Substance: IMATINIB
     Dosage: 300 MG, 1X/DAY
     Route: 048
     Dates: start: 20240603
  12. IMATINIB [Suspect]
     Active Substance: IMATINIB
     Dosage: 100 MG, 1X/DAY
     Route: 048
     Dates: start: 20240604
  13. IMATINIB [Suspect]
     Active Substance: IMATINIB
     Dosage: 200 MG, 1X/DAY
     Route: 048
     Dates: start: 20240605
  14. IMATINIB [Suspect]
     Active Substance: IMATINIB
     Dosage: 300 MG, 1X/DAY
     Route: 048
     Dates: start: 20240606
  15. IMATINIB [Suspect]
     Active Substance: IMATINIB
     Dosage: 200 MG, 1X/DAY
     Route: 048
     Dates: start: 20240609, end: 20240611
  16. SULFAMETHOXAZOLE\TRIMETHOPRIM [Concomitant]
     Active Substance: SULFAMETHOXAZOLE\TRIMETHOPRIM
     Indication: Prophylaxis
     Route: 065
     Dates: start: 202304
  17. PANTOPRAZOLE [Concomitant]
     Active Substance: PANTOPRAZOLE
     Indication: Prophylaxis
     Route: 065
     Dates: start: 202304
  18. PREDNISOLONE [Concomitant]
     Active Substance: PREDNISOLONE
     Indication: Type IV hypersensitivity reaction
     Dosage: 0.5 MG/KG, 1X/DAY (FOR SEVEN DAYS)
     Route: 048
     Dates: start: 20230424
  19. PREDNISOLONE [Concomitant]
     Active Substance: PREDNISOLONE
     Route: 048
     Dates: start: 20230428
  20. PREDNISOLONE [Concomitant]
     Active Substance: PREDNISOLONE
     Dates: start: 20230602, end: 20230825
  21. PREDNISOLONE [Concomitant]
     Active Substance: PREDNISOLONE
     Route: 048
     Dates: start: 20230927
  22. PREDNISOLONE [Concomitant]
     Active Substance: PREDNISOLONE
     Dates: start: 20230928, end: 20231020
  23. BETAMETHASONE [Concomitant]
     Active Substance: BETAMETHASONE
     Indication: Type IV hypersensitivity reaction
     Dates: start: 20230508
  24. BETAMETHASONE [Concomitant]
     Active Substance: BETAMETHASONE
     Dates: start: 20230602, end: 20230825
  25. BETAMETHASONE [Concomitant]
     Active Substance: BETAMETHASONE
     Route: 065
     Dates: start: 20230928, end: 20231020
  26. BETAMETHASONE [Concomitant]
     Active Substance: BETAMETHASONE
     Dates: start: 20240522
  27. HYDROXYZINE [Concomitant]
     Active Substance: HYDROXYZINE HYDROCHLORIDE
     Dates: start: 20230508

REACTIONS (3)
  - Drug reaction with eosinophilia and systemic symptoms [Unknown]
  - Type IV hypersensitivity reaction [Unknown]
  - Stomatitis [Unknown]

NARRATIVE: CASE EVENT DATE: 20230417
